FAERS Safety Report 5743065-7 (Version None)
Quarter: 2008Q2

REPORT INFORMATION
  Report Type: 
  Country: None (occurrence: None)
  Receive Date: 20080516
  Receipt Date: 20071108
  Transmission Date: 20081010
  Serious: Yes (Hospitalization)
  Sender: FDA-Public Use
  Company Number: 2007S1000506

PATIENT
  Sex: Male

DRUGS (2)
  1. CUBICIN [Suspect]
  2. VANCOMYCIN HCL [Suspect]

REACTIONS (1)
  - RASH GENERALISED [None]
